FAERS Safety Report 5277424-6 (Version None)
Quarter: 2007Q1

REPORT INFORMATION
  Report Type: 
  Country: None (occurrence: None)
  Receive Date: 20061213
  Receipt Date: 20060327
  Transmission Date: 20070707
  Serious: No
  Sender: FDA-Public Use
  Company Number: 2006UW05336

PATIENT
  Age: 35 Year
  Sex: Female

DRUGS (4)
  1. SEROQUEL [Suspect]
  2. DEPAKOTE [Suspect]
  3. OTHER MEDICATIONS [Concomitant]
  4. ANTIPSYCHOTIC MEDICATIONS [Concomitant]

REACTIONS (1)
  - BLOOD TRIGLYCERIDES INCREASED [None]
